FAERS Safety Report 8200445-8 (Version None)
Quarter: 2012Q1

REPORT INFORMATION
  Report Type: 
  Country: None (occurrence: None)
  Receive Date: 20120306
  Receipt Date: 20120221
  Transmission Date: 20120608
  Serious: Yes (Hospitalization)
  Sender: FDA-Public Use
  Company Number: 12-120

PATIENT
  Age: 63 Year
  Sex: Female

DRUGS (6)
  1. ALENDRONATE SODIUM [Suspect]
     Indication: OSTEOPOROSIS
     Dosage: 70MG / QW / ORAL
     Route: 048
  2. ADCAL-D3 [Concomitant]
  3. IBUPROFEN [Suspect]
     Dosage: 400MG / TID / ORAL
     Route: 048
  4. PAROVEN [Concomitant]
  5. DOCUSATE [Concomitant]
  6. MOVIPREP [Concomitant]

REACTIONS (2)
  - DUODENAL ULCER HAEMORRHAGE [None]
  - OESOPHAGEAL ULCER [None]
